FAERS Safety Report 16175450 (Version 2)
Quarter: 2019Q2

REPORT INFORMATION
  Report Type: Spontaneous
  Country: ES (occurrence: ES)
  Receive Date: 20190409
  Receipt Date: 20190415
  Transmission Date: 20190711
  Serious: Yes (Other)
  Sender: FDA-Public Use
  Company Number: ES-BAYER-2019-068492

PATIENT
  Age: 73 Year
  Sex: Female

DRUGS (1)
  1. ASPIRINA 500 MG [Suspect]
     Active Substance: ASPIRIN
     Indication: HEADACHE
     Dosage: UNK
     Route: 048

REACTIONS (5)
  - Ulcer [Not Recovered/Not Resolved]
  - Abdominal pain upper [None]
  - Abdominal discomfort [None]
  - Duodenal ulcer [None]
  - Vertigo [None]

NARRATIVE: CASE EVENT DATE: 201904
